FAERS Safety Report 6518459-2 (Version None)
Quarter: 2009Q4

REPORT INFORMATION
  Report Type: 
  Country: None (occurrence: None)
  Receive Date: 20091226
  Receipt Date: 20091214
  Transmission Date: 20100525
  Serious: No
  Sender: FDA-Public Use
  Company Number: AU-JNJFOC-20091204182

PATIENT
  Sex: Male

DRUGS (7)
  1. DURAGESIC-100 [Suspect]
     Indication: PAIN
     Route: 062
  2. DURAGESIC-100 [Suspect]
     Route: 062
  3. PANADOL OSTEO [Concomitant]
     Route: 065
  4. AVAPRO [Concomitant]
     Route: 065
  5. ESCITALOPRAM OXALATE [Concomitant]
     Route: 065
  6. LYRICA [Concomitant]
     Route: 065
  7. UNKNOWN MEDICATION [Concomitant]
     Route: 065

REACTIONS (5)
  - ARTHRALGIA [None]
  - DRUG DOSE OMISSION [None]
  - DYSKINESIA [None]
  - INSOMNIA [None]
  - PAIN IN EXTREMITY [None]
